FAERS Safety Report 19373663 (Version 1)
Quarter: 2021Q2

REPORT INFORMATION
  Report Type: Spontaneous
  Country: US (occurrence: US)
  Receive Date: 20210604
  Receipt Date: 20210604
  Transmission Date: 20210717
  Serious: No
  Sender: FDA-Public Use
  Company Number: None

PATIENT
  Age: 60 Year
  Sex: Male
  Weight: 106.14 kg

DRUGS (1)
  1. LISINOPRIL (LISINOPRIL 10MG TAB) [Suspect]
     Active Substance: LISINOPRIL
     Indication: HYPERTENSION
     Route: 048
     Dates: start: 20201103, end: 20210223

REACTIONS (5)
  - Staphylococcal bacteraemia [None]
  - Angioedema [None]
  - Diverticulitis intestinal perforated [None]
  - Deep vein thrombosis [None]
  - Abdominal distension [None]

NARRATIVE: CASE EVENT DATE: 20210223
